FAERS Safety Report 18246271 (Version 2)
Quarter: 2021Q2

REPORT INFORMATION
  Report Type: Spontaneous
  Country: US (occurrence: US)
  Receive Date: 20200909
  Receipt Date: 20210511
  Transmission Date: 20210717
  Serious: Yes (Other)
  Sender: FDA-Public Use
  Company Number: US-ASTRAZENECA-2020SF12563

PATIENT
  Age: 59 Year
  Sex: Female
  Weight: 50.8 kg

DRUGS (1)
  1. TAGRISSO [Suspect]
     Active Substance: OSIMERTINIB
     Indication: NON-SMALL CELL LUNG CANCER METASTATIC
     Route: 048
     Dates: start: 201901

REACTIONS (16)
  - Adrenal mass [Unknown]
  - Vision blurred [Not Recovered/Not Resolved]
  - Metastases to the mediastinum [Unknown]
  - Abdominal pain [Unknown]
  - Cardiomegaly [Unknown]
  - Arthralgia [Unknown]
  - Pain in extremity [Recovering/Resolving]
  - Cholelithiasis [Unknown]
  - Haemangioma [Unknown]
  - Pruritus [Unknown]
  - Eye pain [Unknown]
  - Skin discolouration [Not Recovered/Not Resolved]
  - Hair texture abnormal [Unknown]
  - Musculoskeletal chest pain [Not Recovered/Not Resolved]
  - Pain [Unknown]
  - Dry skin [Unknown]

NARRATIVE: CASE EVENT DATE: 2019
